FAERS Safety Report 4285984-7 (Version None)
Quarter: 2004Q1

REPORT INFORMATION
  Report Type: 
  Country: None (occurrence: None)
  Receive Date: 20040205
  Receipt Date: 20040118
  Transmission Date: 20041129
  Serious: Yes (Other)
  Sender: FDA-Public Use
  Company Number: WAES 0402ISR00001

PATIENT

DRUGS (3)
  1. BEZAFIBRATE [Concomitant]
     Route: 048
  2. ZETIA [Suspect]
     Route: 048
  3. SIMVASTATIN [Concomitant]
     Route: 048

REACTIONS (2)
  - BLOOD CREATINE PHOSPHOKINASE INCREASED [None]
  - CONDITION AGGRAVATED [None]
